FAERS Safety Report 6501626-1 (Version None)
Quarter: 2009Q4

REPORT INFORMATION
  Report Type: 
  Country: None (occurrence: None)
  Receive Date: 20091216
  Receipt Date: 20091207
  Transmission Date: 20100525
  Serious: Yes (Other)
  Sender: FDA-Public Use
  Company Number: US-ELI_LILLY_AND_COMPANY-US200912002727

PATIENT
  Sex: Male
  Weight: 79.274 kg

DRUGS (13)
  1. BYETTA [Suspect]
     Indication: TYPE 2 DIABETES MELLITUS
     Dosage: 5 UG, 2/D
     Route: 058
     Dates: start: 20071226, end: 20080101
  2. BYETTA [Suspect]
     Dosage: 10 UG, 2/D
     Route: 058
     Dates: start: 20080101
  3. BYETTA [Suspect]
     Dosage: 10 UG, 2/D
     Route: 058
     Dates: start: 20080101
  4. PLAVIX [Concomitant]
     Dosage: UNK, UNKNOWN
  5. RANITIDINE [Concomitant]
     Dosage: UNK, UNKNOWN
     Dates: start: 20090201
  6. SIMVASTATIN [Concomitant]
     Indication: BLOOD CHOLESTEROL
     Dosage: UNK, UNKNOWN
  7. HYDROCHLOROTHIAZIDE [Concomitant]
     Dosage: UNK, UNKNOWN
  8. DOXAZOSIN MESYLATE [Concomitant]
     Dosage: UNK, UNKNOWN
  9. ASPIRIN [Concomitant]
     Dosage: UNK, UNKNOWN
  10. PIOGLITAZONE [Concomitant]
     Indication: TYPE 2 DIABETES MELLITUS
     Dosage: UNK, UNKNOWN
  11. FOLIC ACID [Concomitant]
     Dosage: UNK, UNKNOWN
  12. GLIPIZIDE [Concomitant]
     Dosage: UNK, UNKNOWN
  13. METFORMIN HCL [Concomitant]
     Dosage: UNK, UNKNOWN

REACTIONS (4)
  - ARTERIAL REPAIR [None]
  - ARTERIAL STENT INSERTION [None]
  - EYE DISORDER [None]
  - UVEITIS [None]
